FAERS Safety Report 10066349 (Version 1)
Quarter: 2014Q2

REPORT INFORMATION
  Report Type: Spontaneous
  Country: US (occurrence: US)
  Receive Date: 20140408
  Receipt Date: 20140408
  Transmission Date: 20141212
  Serious: No
  Sender: FDA-Public Use
  Company Number: US-TEVA-473972USA

PATIENT
  Sex: Male

DRUGS (3)
  1. CLARAVIS [Suspect]
     Route: 048
  2. CLARAVIS [Suspect]
     Route: 048
  3. AMNESTEEM [Suspect]

REACTIONS (1)
  - Mental disorder [Unknown]
